FAERS Safety Report 21567852 (Version 1)
Quarter: 2022Q4

REPORT INFORMATION
  Report Type: Spontaneous
  Country: FR (occurrence: FR)
  Receive Date: 20221108
  Receipt Date: 20221108
  Transmission Date: 20230113
  Serious: Yes (Hospitalization)
  Sender: FDA-Public Use
  Company Number: None

PATIENT
  Age: 21 Year
  Sex: Female

DRUGS (9)
  1. FLUCONAZOLE [Suspect]
     Active Substance: FLUCONAZOLE
     Indication: Abdominal infection
     Dosage: 400 MG, 1X/DAY
     Route: 042
     Dates: start: 20220729, end: 20220813
  2. DAPTOMYCIN [Suspect]
     Active Substance: DAPTOMYCIN
     Indication: Abdominal infection
     Dosage: 700 MG, 1X/DAY
     Route: 042
     Dates: start: 20220729, end: 20220813
  3. METRONIDAZOLE [Suspect]
     Active Substance: METRONIDAZOLE
     Indication: Abdominal infection
     Dosage: 1500 MG, 1X/DAY
     Route: 048
     Dates: start: 20220810, end: 20220813
  4. CEFEPIME [Suspect]
     Active Substance: CEFEPIME HYDROCHLORIDE
     Indication: Abdominal infection
     Dosage: 6 G, 1X/DAY
     Route: 042
     Dates: start: 20220810, end: 20220813
  5. LOVENOX [Concomitant]
     Active Substance: ENOXAPARIN SODIUM
     Dosage: 4 000 IU ANTI-XA/0.4 ML, SOLUTION INJECTABLE IN CARTOUCHE
  6. PHLOROGLUCINOL [Concomitant]
     Active Substance: PHLOROGLUCINOL
     Dosage: UNK
  7. TRAMADOL HYDROCHLORIDE [Concomitant]
     Active Substance: TRAMADOL HYDROCHLORIDE
     Dosage: UNK
  8. ACETAMINOPHEN [Concomitant]
     Active Substance: ACETAMINOPHEN
     Dosage: UNK
  9. RACECADOTRIL [Concomitant]
     Active Substance: RACECADOTRIL
     Dosage: UNK

REACTIONS (3)
  - Erythema [Recovered/Resolved]
  - Pyrexia [Recovered/Resolved]
  - Off label use [Unknown]

NARRATIVE: CASE EVENT DATE: 20220101
